FAERS Safety Report 20423750 (Version 3)
Quarter: 2022Q3

REPORT INFORMATION
  Report Type: Spontaneous
  Country: US (occurrence: US)
  Receive Date: 20220203
  Receipt Date: 20220902
  Transmission Date: 20221027
  Serious: No
  Sender: FDA-Public Use
  Company Number: US-BEH-2022141428

PATIENT
  Age: 45 Year
  Sex: Female
  Weight: 109 kg

DRUGS (11)
  1. HIZENTRA [Suspect]
     Active Substance: HUMAN IMMUNOGLOBULIN G
     Indication: Immunodeficiency
     Dosage: 12 GRAM, QW
     Route: 058
     Dates: start: 20210824
  2. HIZENTRA [Suspect]
     Active Substance: HUMAN IMMUNOGLOBULIN G
     Dosage: UNK
     Route: 065
  3. ALLEGRA [Concomitant]
     Active Substance: FEXOFENADINE HYDROCHLORIDE
  4. BENADRYL [Concomitant]
     Active Substance: DIPHENHYDRAMINE HYDROCHLORIDE
  5. FEXOFENADINE HCL [Concomitant]
     Active Substance: FEXOFENADINE HYDROCHLORIDE
  6. CEFIXIME [Concomitant]
     Active Substance: CEFIXIME
  7. FLONASE [Concomitant]
     Active Substance: FLUTICASONE PROPIONATE
  8. SARILUMAB [Concomitant]
     Active Substance: SARILUMAB
  9. PREVACID [Concomitant]
     Active Substance: LANSOPRAZOLE
  10. RITUXAN [Concomitant]
     Active Substance: RITUXIMAB
  11. ZOLOFT [Concomitant]
     Active Substance: SERTRALINE HYDROCHLORIDE

REACTIONS (5)
  - Pain [Unknown]
  - Injection site discomfort [Unknown]
  - No adverse event [Not Recovered/Not Resolved]
  - Insurance issue [Not Recovered/Not Resolved]
  - Product distribution issue [Not Recovered/Not Resolved]
